APPROVED DRUG PRODUCT: PYRIMETHAMINE
Active Ingredient: PYRIMETHAMINE
Strength: 25MG
Dosage Form/Route: TABLET;ORAL
Application: A207127 | Product #001 | TE Code: AB
Applicant: SANALUZ LLC
Approved: Feb 28, 2020 | RLD: No | RS: No | Type: RX